FAERS Safety Report 6508297-9 (Version None)
Quarter: 2009Q4

REPORT INFORMATION
  Report Type: 
  Country: None (occurrence: None)
  Receive Date: 20091221
  Receipt Date: 20081110
  Transmission Date: 20100525
  Serious: No
  Sender: FDA-Public Use
  Company Number: US-ASTRAZENECA-2008UW25149

PATIENT
  Age: 66 Year
  Sex: Male
  Weight: 90.3 kg

DRUGS (2)
  1. CRESTOR [Suspect]
     Indication: HYPOCHOLESTEROLAEMIA
     Route: 048
     Dates: start: 20080101
  2. LOPRESSOR [Concomitant]

REACTIONS (2)
  - PAIN [None]
  - PYREXIA [None]
